FAERS Safety Report 5789246-8 (Version None)
Quarter: 2008Q2

REPORT INFORMATION
  Report Type: 
  Country: None (occurrence: None)
  Receive Date: 20080623
  Receipt Date: 20080617
  Transmission Date: 20081010
  Serious: Yes (Life-Threatening)
  Sender: FDA-Public Use
  Company Number: 2008SP011888

PATIENT
  Age: 59 Year
  Sex: Male

DRUGS (3)
  1. TEMODAL [Suspect]
     Indication: GLIOBLASTOMA MULTIFORME
     Dosage: 105 MG; QD; PO
     Route: 048
     Dates: start: 20080318, end: 20080505
  2. CARBAMAZEPINE [Suspect]
     Indication: EPILEPSY
     Dosage: 800 MG; QD; PO
     Route: 048
     Dates: start: 20080201
  3. DEXAMETHASONE (CON.) [Concomitant]

REACTIONS (1)
  - HEPATITIS TOXIC [None]
